FAERS Safety Report 4678998-6 (Version None)
Quarter: 2005Q2

REPORT INFORMATION
  Report Type: 
  Country: None (occurrence: None)
  Receive Date: 20050525
  Receipt Date: 20050329
  Transmission Date: 20051028
  Serious: No
  Sender: FDA-Public Use
  Company Number: 213462

PATIENT
  Age: 47 Year
  Sex: Male

DRUGS (3)
  1. RAPTIVA [Suspect]
     Indication: NEURODERMATITIS
     Dosage: 84 MG, SINGLE; 120 MG, 1/WEEK
     Dates: start: 20050316, end: 20050316
  2. RAPTIVA [Suspect]
     Indication: NEURODERMATITIS
     Dosage: 84 MG, SINGLE; 120 MG, 1/WEEK
     Dates: start: 20050320, end: 20050322
  3. TYLENOL [Concomitant]

REACTIONS (2)
  - BLOOD PRESSURE INCREASED [None]
  - FLUSHING [None]
